FAERS Safety Report 15488555 (Version 1)
Quarter: 2018Q4

REPORT INFORMATION
  Report Type: Spontaneous
  Country: FR (occurrence: FR)
  Receive Date: 20181011
  Receipt Date: 20181011
  Transmission Date: 20190205
  Serious: Yes (Other)
  Sender: FDA-Public Use
  Company Number: FR-PFIZER INC-2018382519

PATIENT
  Age: 44 Year
  Sex: Female
  Weight: 110 kg

DRUGS (1)
  1. CHAMPIX [Suspect]
     Active Substance: VARENICLINE TARTRATE
     Indication: SMOKING CESSATION THERAPY
     Dosage: UNK, STARTER KIT
     Dates: start: 200802, end: 20080226

REACTIONS (8)
  - Nightmare [Recovering/Resolving]
  - Insomnia [Recovering/Resolving]
  - Depression [Unknown]
  - Crying [Unknown]
  - Hallucination [Unknown]
  - Coronary artery restenosis [Unknown]
  - Infarction [Unknown]
  - Weight increased [Unknown]

NARRATIVE: CASE EVENT DATE: 200802
